FAERS Safety Report 21224172 (Version 1)
Quarter: 2022Q3

REPORT INFORMATION
  Report Type: Spontaneous
  Country: US (occurrence: None)
  Receive Date: 20220817
  Receipt Date: 20220817
  Transmission Date: 20221027
  Serious: No
  Sender: FDA-Public Use
  Company Number: None

PATIENT
  Age: 47 Year
  Sex: Male
  Weight: 72.48 kg

DRUGS (6)
  1. ALECENSA [Suspect]
     Active Substance: ALECTINIB HYDROCHLORIDE
     Indication: Anaplastic large cell lymphoma T- and null-cell types
     Dosage: FREQUENCY : TWICE A DAY;?
     Route: 048
  2. ALECENSA [Suspect]
     Active Substance: ALECTINIB HYDROCHLORIDE
     Indication: Metastases to lymph nodes
  3. CLOTRIMAZOLE [Concomitant]
  4. FOLIC ACID [Concomitant]
  5. IBUPROFEN [Concomitant]
  6. PAXLOVID [Concomitant]

REACTIONS (1)
  - SARS-CoV-2 test positive [None]
